FAERS Safety Report 8209892-1 (Version None)
Quarter: 2012Q1

REPORT INFORMATION
  Report Type: 
  Country: None (occurrence: None)
  Receive Date: 20120314
  Receipt Date: 20120306
  Transmission Date: 20120608
  Serious: Yes (Other)
  Sender: FDA-Public Use
  Company Number: CA-ROCHE-GNE315927

PATIENT
  Sex: Female
  Weight: 60.364 kg

DRUGS (3)
  1. XOLAIR [Suspect]
     Indication: ASTHMA
     Dosage: 225 MG, Q2W
     Route: 058
     Dates: start: 20070124
  2. HYDROCHLOROTHIAZIDE [Concomitant]
     Indication: PRODUCT USED FOR UNKNOWN INDICATION
     Dosage: UNK
  3. XOLAIR [Suspect]
     Dates: start: 20090610

REACTIONS (9)
  - NASOPHARYNGITIS [None]
  - RASH [None]
  - LUNG INFECTION [None]
  - VISION BLURRED [None]
  - HEADACHE [None]
  - BLOOD PRESSURE INCREASED [None]
  - MALAISE [None]
  - FATIGUE [None]
  - PNEUMONIA [None]
